FAERS Safety Report 7035292-6 (Version None)
Quarter: 2010Q4

REPORT INFORMATION
  Report Type: 
  Country: None (occurrence: None)
  Receive Date: 20101008
  Receipt Date: 20100930
  Transmission Date: 20110411
  Serious: Yes (Other)
  Sender: FDA-Public Use
  Company Number: B0675678A

PATIENT
  Sex: Male

DRUGS (6)
  1. CEFUROXIME [Suspect]
     Indication: PRODUCT USED FOR UNKNOWN INDICATION
     Dosage: 750MG PER DAY
     Route: 048
     Dates: start: 20090501, end: 20090501
  2. UNKNOWN DRUG [Suspect]
     Indication: PRODUCT USED FOR UNKNOWN INDICATION
     Route: 065
  3. EMPYNASE [Concomitant]
  4. MUCOSTA [Concomitant]
  5. DALACIN [Concomitant]
  6. RINDERON [Concomitant]

REACTIONS (1)
  - OCULOMUCOCUTANEOUS SYNDROME [None]
